FAERS Safety Report 26159540 (Version 1)
Quarter: 2025Q4

REPORT INFORMATION
  Report Type: Spontaneous
  Country: US (occurrence: None)
  Receive Date: 20251216
  Receipt Date: 20251216
  Transmission Date: 20260118
  Serious: No
  Sender: UCB
  Company Number: US-UCBSA-2025060810

PATIENT
  Weight: 83.91 kg

DRUGS (3)
  1. BIMZELX [Suspect]
     Active Substance: BIMEKIZUMAB-BKZX
     Indication: Psoriasis
     Dosage: 320 MILLIGRAM, EV 4 WEEKS
  2. TRIAMCINOLONE ACETONIDE [Concomitant]
     Active Substance: TRIAMCINOLONE ACETONIDE
     Indication: Product used for unknown indication
     Dosage: 40 MG/ML VIAL
  3. CLOBETASOL PROPIONATE [Concomitant]
     Active Substance: CLOBETASOL PROPIONATE
     Indication: Product used for unknown indication
     Dosage: 0.05 % CREAM(GM)

REACTIONS (1)
  - Pain [Unknown]
